FAERS Safety Report 12144092 (Version 1)
Quarter: 2016Q1

REPORT INFORMATION
  Report Type: Spontaneous
  Country: US (occurrence: None)
  Receive Date: 20160303
  Receipt Date: 20160303
  Transmission Date: 20160526
  Serious: Yes (Death)
  Sender: FDA-Public Use
  Company Number: None

PATIENT
  Age: 83 Year
  Sex: Male

DRUGS (2)
  1. CLOPIDOGREL [Suspect]
     Active Substance: CLOPIDOGREL BISULFATE
     Indication: ACUTE MYOCARDIAL INFARCTION
     Route: 048
     Dates: start: 20160203, end: 20160224
  2. WARFARIN [Suspect]
     Active Substance: WARFARIN
     Indication: ATRIAL FIBRILLATION
     Route: 048
     Dates: start: 20160209, end: 20160224

REACTIONS (6)
  - Gastrointestinal haemorrhage [None]
  - Anaemia [None]
  - Hypotension [None]
  - Diarrhoea [None]
  - International normalised ratio increased [None]
  - Haematochezia [None]

NARRATIVE: CASE EVENT DATE: 20160223
